FAERS Safety Report 7246592 (Version 19)
Quarter: 2017Q3

REPORT INFORMATION
  Report Type: Spontaneous
  Country: GB (occurrence: GB)
  Receive Date: 20100114
  Receipt Date: 20170928
  Transmission Date: 20171128
  Serious: Yes (Other)
  Sender: FDA-Public Use
  Company Number: GB-GILEAD-2009-0025174

PATIENT
  Age: 42 Year
  Sex: Female
  Weight: 74 kg

DRUGS (38)
  1. INTELENCE [Suspect]
     Active Substance: ETRAVIRINE
     Dosage: 1000 MG, QID
     Route: 065
     Dates: start: 20081023
  2. APTIVUS [Suspect]
     Active Substance: TIPRANAVIR
     Dosage: UNK
     Route: 048
  3. ZIDOVUDINE. [Concomitant]
     Active Substance: ZIDOVUDINE
     Dosage: UNK
  4. INTELENCE [Suspect]
     Active Substance: ETRAVIRINE
     Indication: HIV INFECTION
     Dosage: 500 MG, BID
     Route: 065
     Dates: start: 20081023
  5. ETRAVIRINE [Suspect]
     Active Substance: ETRAVIRINE
     Indication: PRODUCT USED FOR UNKNOWN INDICATION
     Dosage: 1000 MG, QID
     Route: 065
     Dates: start: 20081023
  6. NITROUS OXIDE/OXYGEN [Concomitant]
     Route: 055
  7. NITROUS OXIDE. [Concomitant]
     Active Substance: NITROUS OXIDE
     Dosage: UNK
     Route: 042
  8. TRUVADA [Suspect]
     Active Substance: EMTRICITABINE\TENOFOVIR DISOPROXIL FUMARATE
     Indication: HIV INFECTION
     Dosage: 1 DF, QD
     Route: 065
     Dates: start: 20070605, end: 20081023
  9. NORVIR [Suspect]
     Active Substance: RITONAVIR
     Indication: HIV INFECTION
     Dosage: 100 MG, BID
     Route: 048
     Dates: start: 20081023
  10. ETRAVIRINE [Suspect]
     Active Substance: ETRAVIRINE
     Dosage: 400 MG, BID
     Route: 065
     Dates: start: 20081023, end: 20090221
  11. NITROUS OXIDE. [Concomitant]
     Active Substance: NITROUS OXIDE
     Indication: PRODUCT USED FOR UNKNOWN INDICATION
     Dosage: UNK
  12. OXYGEN. [Concomitant]
     Active Substance: OXYGEN
     Indication: PRODUCT USED FOR UNKNOWN INDICATION
     Dosage: UNK
  13. ENFUVIRTIDE. [Concomitant]
     Active Substance: ENFUVIRTIDE
     Dosage: 25 MG, UNK
  14. ENFUVIRTIDE. [Concomitant]
     Active Substance: ENFUVIRTIDE
     Dosage: UNK
  15. PREZISTA [Suspect]
     Active Substance: DARUNAVIR ETHANOLATE
     Indication: HIV INFECTION
     Dosage: 600 MG, BID
     Route: 048
     Dates: start: 20081023
  16. ISENTRESS [Suspect]
     Active Substance: RALTEGRAVIR POTASSIUM
     Dosage: UNK
     Route: 048
  17. APTIVUS [Suspect]
     Active Substance: TIPRANAVIR
     Indication: HIV INFECTION
     Dosage: 500 MG, BID
     Route: 048
     Dates: start: 20060905, end: 20081023
  18. NOVORAPID [Concomitant]
     Active Substance: INSULIN ASPART
     Dosage: UNK
  19. PREDNISOLONE. [Concomitant]
     Active Substance: PREDNISOLONE
     Indication: PRODUCT USED FOR UNKNOWN INDICATION
     Dosage: 25 MG, UNK
  20. NITROUS OXIDE. [Concomitant]
     Active Substance: NITROUS OXIDE
     Dosage: UNK
  21. NITROUS OXIDE. [Concomitant]
     Active Substance: NITROUS OXIDE
     Dosage: UNK
     Route: 042
  22. NITROUS OXIDE. [Concomitant]
     Active Substance: NITROUS OXIDE
     Dosage: UNK
  23. PREZISTA [Suspect]
     Active Substance: DARUNAVIR ETHANOLATE
     Dosage: UNK
     Route: 048
  24. ISENTRESS [Suspect]
     Active Substance: RALTEGRAVIR POTASSIUM
     Indication: HIV INFECTION
     Dosage: 400 MG, BID
     Route: 048
     Dates: start: 20081023, end: 20090221
  25. NOVORAPID [Concomitant]
     Active Substance: INSULIN ASPART
     Indication: GESTATIONAL DIABETES
     Dosage: 200 MG, BID
     Route: 065
  26. NORVIR [Suspect]
     Active Substance: RITONAVIR
     Dosage: 200 MG, BID
     Route: 048
     Dates: start: 20060905, end: 20081022
  27. NORVIR [Suspect]
     Active Substance: RITONAVIR
     Dosage: UNK
     Route: 048
  28. ZIDOVUDINE. [Concomitant]
     Active Substance: ZIDOVUDINE
     Dosage: UNK
  29. NITROUS OXIDE. [Concomitant]
     Active Substance: NITROUS OXIDE
     Dosage: UNK
  30. NITROUS OXIDE. [Concomitant]
     Active Substance: NITROUS OXIDE
     Dosage: UNK
  31. TRUVADA [Suspect]
     Active Substance: EMTRICITABINE\TENOFOVIR DISOPROXIL FUMARATE
     Dosage: UNK
     Route: 065
  32. INTELENCE [Suspect]
     Active Substance: ETRAVIRINE
     Dosage: 1000 MG, QID
     Route: 065
     Dates: start: 20081023
  33. ZIDOVUDINE. [Concomitant]
     Active Substance: ZIDOVUDINE
     Indication: ANTIVIRAL PROPHYLAXIS
     Dosage: UNK
     Route: 042
  34. NOVORAPID [Concomitant]
     Active Substance: INSULIN ASPART
     Dosage: 200 MG, BID
     Route: 065
  35. NOVORAPID [Concomitant]
     Active Substance: INSULIN ASPART
     Dosage: UNK
  36. NITROUS OXIDE. [Concomitant]
     Active Substance: NITROUS OXIDE
     Dosage: 25 MG, UNK
  37. NITROUS OXIDE. [Concomitant]
     Active Substance: NITROUS OXIDE
     Dosage: 25 MG, UNK
  38. NITROUS OXIDE. [Concomitant]
     Active Substance: NITROUS OXIDE
     Dosage: UNK

REACTIONS (7)
  - Drug-induced liver injury [Unknown]
  - Alanine aminotransferase abnormal [Recovered/Resolved]
  - Gestational diabetes [Unknown]
  - Aspartate aminotransferase abnormal [Recovered/Resolved]
  - Maternal exposure during pregnancy [Recovered/Resolved]
  - Premature labour [Recovered/Resolved]
  - Lipodystrophy acquired [Recovered/Resolved]

NARRATIVE: CASE EVENT DATE: 20080616
